FAERS Safety Report 7096320-5 (Version None)
Quarter: 2010Q4

REPORT INFORMATION
  Report Type: 
  Country: None (occurrence: None)
  Receive Date: 20101111
  Receipt Date: 20101103
  Transmission Date: 20110411
  Serious: Yes (Hospitalization)
  Sender: FDA-Public Use
  Company Number: US-AMGEN-USANI2010003608

PATIENT

DRUGS (1)
  1. ETANERCEPT [Suspect]
     Indication: PSORIASIS
     Dosage: 50 MG, 2 TIMES/WK
     Dates: start: 20060720, end: 20080512

REACTIONS (5)
  - ASTHENIA [None]
  - DIARRHOEA [None]
  - LEUKOCYTOSIS [None]
  - PYREXIA [None]
  - SYNCOPE [None]
